FAERS Safety Report 10251051 (Version 2)
Quarter: 2014Q2

REPORT INFORMATION
  Report Type: Report from Study
  Country: BR (occurrence: BR)
  Receive Date: 20140620
  Receipt Date: 20140620
  Transmission Date: 20141212
  Serious: Yes (Other)
  Sender: FDA-Public Use
  Company Number: BR-ABBVIE-11P-020-0710884-00

PATIENT
  Sex: Female
  Weight: 80 kg

DRUGS (11)
  1. HUMIRA [Suspect]
     Indication: RHEUMATOID ARTHRITIS
     Route: 058
  2. OXCARBAZEPINE [Concomitant]
     Indication: CEREBRAL DISORDER
     Route: 048
  3. DEFLAZACORT [Concomitant]
     Indication: PAIN
     Route: 048
  4. LEFLUNOMIDE [Concomitant]
     Indication: RHEUMATOID ARTHRITIS
     Route: 048
  5. OMEPRAZOLE [Concomitant]
     Indication: PROPHYLAXIS AGAINST GASTROINTESTINAL ULCER
     Route: 048
  6. PANTOPRAZOLE [Concomitant]
     Indication: PRODUCT USED FOR UNKNOWN INDICATION
  7. CONCOR [Concomitant]
     Indication: PRODUCT USED FOR UNKNOWN INDICATION
  8. DIUPRESS [Concomitant]
     Indication: PRODUCT USED FOR UNKNOWN INDICATION
  9. LOSARTAN [Concomitant]
     Indication: PRODUCT USED FOR UNKNOWN INDICATION
  10. UNSPECIFIED CORTICOID [Concomitant]
     Indication: PRODUCT USED FOR UNKNOWN INDICATION
  11. ARAVA [Concomitant]
     Indication: PRODUCT USED FOR UNKNOWN INDICATION

REACTIONS (6)
  - Convulsion [Recovered/Resolved]
  - Amnesia [Not Recovered/Not Resolved]
  - Confusional state [Not Recovered/Not Resolved]
  - Weight decreased [Unknown]
  - Hydrocephalus [Unknown]
  - Memory impairment [Unknown]
